FAERS Safety Report 7635231-0 (Version None)
Quarter: 2011Q3

REPORT INFORMATION
  Report Type: 
  Country: None (occurrence: None)
  Receive Date: 20110718
  Receipt Date: 20110706
  Transmission Date: 20111222
  Serious: Yes (Hospitalization)
  Sender: FDA-Public Use
  Company Number: JPI-P-015753

PATIENT
  Age: 42 Year
  Sex: Male

DRUGS (2)
  1. XYREM [Suspect]
     Indication: NARCOLEPSY
     Dosage: SEE IMAGE
     Route: 048
     Dates: start: 20030530
  2. XYREM [Suspect]
     Indication: NARCOLEPSY
     Dosage: SEE IMAGE
     Route: 048
     Dates: start: 20110511, end: 20110704

REACTIONS (4)
  - MENTAL IMPAIRMENT [None]
  - FRONTAL LOBE EPILEPSY [None]
  - COMPLEX PARTIAL SEIZURES [None]
  - TARDIVE DYSKINESIA [None]
